FAERS Safety Report 15060232 (Version 1)
Quarter: 2018Q2

REPORT INFORMATION
  Report Type: Report from Study
  Country: US (occurrence: US)
  Receive Date: 20180625
  Receipt Date: 20180625
  Transmission Date: 20180711
  Serious: Yes (Other)
  Sender: FDA-Public Use
  Company Number: US-MYLANLABS-2018M1044394

PATIENT
  Age: 26 Year
  Sex: Female

DRUGS (1)
  1. GLATIRAMER ACETATE INJECTION [Suspect]
     Active Substance: GLATIRAMER ACETATE
     Indication: RELAPSING-REMITTING MULTIPLE SCLEROSIS
     Dosage: 40 MG, UNK

REACTIONS (8)
  - Drug interaction [Unknown]
  - Seizure [Unknown]
  - Disease progression [Unknown]
  - Respiratory disorder [Unknown]
  - Multiple sclerosis [Unknown]
  - Pharyngeal disorder [Unknown]
  - Speech disorder [Unknown]
  - Blood pressure decreased [Unknown]
